FAERS Safety Report 15259382 (Version 1)
Quarter: 2018Q3

REPORT INFORMATION
  Report Type: Other
  Country: CN (occurrence: CN)
  Receive Date: 20180809
  Receipt Date: 20180809
  Transmission Date: 20181010
  Serious: Yes (Other)
  Sender: FDA-Public Use
  Company Number: CN-IMPAX LABORATORIES, INC-2018-IPXL-02643

PATIENT
  Age: 7 Year
  Sex: Male
  Weight: 25 kg

DRUGS (2)
  1. RIFAMYCIN SODIUM [Concomitant]
     Active Substance: RIFAMYCIN SODIUM
     Indication: PRODUCT USED FOR UNKNOWN INDICATION
     Dosage: 0.25 G, QD
     Route: 042
     Dates: start: 20180618, end: 20180620
  2. ALBENZA [Suspect]
     Active Substance: ALBENDAZOLE
     Indication: PARASITIC GASTROENTERITIS
     Dosage: 2 TABLETS, ONCE DAILY
     Route: 048
     Dates: start: 20180619, end: 20180619

REACTIONS (2)
  - Haematochezia [Recovered/Resolved]
  - Abdominal pain [Unknown]

NARRATIVE: CASE EVENT DATE: 20180619
